FAERS Safety Report 7488295-1 (Version None)
Quarter: 2011Q2

REPORT INFORMATION
  Report Type: 
  Country: None (occurrence: None)
  Receive Date: 20110518
  Receipt Date: 20110509
  Transmission Date: 20111010
  Serious: Yes (Other)
  Sender: FDA-Public Use
  Company Number: FR-ASTRAZENECA-2011SE02406

PATIENT
  Age: 3150 Day
  Sex: Male

DRUGS (11)
  1. ACETAMINOPHEN [Suspect]
     Route: 048
  2. CODENFAN [Suspect]
     Route: 048
  3. RETINOIC ACID [Concomitant]
     Dates: start: 20091101, end: 20100601
  4. OMEPRAZOLE [Suspect]
     Route: 048
  5. ETOPOSIDE [Suspect]
     Route: 048
  6. DEPOCYT [Suspect]
     Indication: MEDULLOBLASTOMA
     Route: 018
     Dates: start: 20090701
  7. DEXAMETHASONE [Suspect]
  8. TEMODAL [Concomitant]
     Dates: start: 20091101, end: 20100601
  9. BACTRIM [Suspect]
     Route: 048
  10. VEPESID [Concomitant]
     Dates: start: 20091101, end: 20100601
  11. CYCLOPHOSPHAMIDE [Concomitant]
     Dates: start: 20091101, end: 20100601

REACTIONS (2)
  - OEDEMA [None]
  - GENERALISED OEDEMA [None]
